FAERS Safety Report 24170629 (Version 1)
Quarter: 2024Q3

REPORT INFORMATION
  Report Type: Spontaneous
  Country: US (occurrence: None)
  Receive Date: 20240802
  Receipt Date: 20240802
  Transmission Date: 20241017
  Serious: No
  Sender: Public
  Company Number: None

PATIENT
  Sex: Male

DRUGS (1)
  1. LENALIDOMIDE [Suspect]
     Active Substance: LENALIDOMIDE
     Indication: Plasma cell myeloma
     Dosage: FREQUENCY : DAILY;?
     Route: 048
     Dates: start: 20240626, end: 20240709

REACTIONS (5)
  - Thrombocytopenia [None]
  - Therapy cessation [None]
  - Pleural effusion [None]
  - Anaemia [None]
  - SARS-CoV-2 test positive [None]
